FAERS Safety Report 6552901-6 (Version None)
Quarter: 2010Q1

REPORT INFORMATION
  Report Type: 
  Country: None (occurrence: None)
  Receive Date: 20100122
  Receipt Date: 20100120
  Transmission Date: 20100710
  Serious: Yes (Death)
  Sender: FDA-Public Use
  Company Number: 2006SP008895

PATIENT
  Age: 83 Year
  Sex: Male
  Weight: 41 kg

DRUGS (7)
  1. TEMODAL [Suspect]
     Indication: GLIOBLASTOMA MULTIFORME
     Dosage: 150 MG/M2; QD; PO
     Route: 048
     Dates: start: 20060920, end: 20060924
  2. TEMODAL [Suspect]
     Indication: NEOPLASM RECURRENCE
     Dosage: 150 MG/M2; QD; PO
     Route: 048
     Dates: start: 20060920, end: 20060924
  3. PREDONINE (CON.) [Concomitant]
  4. GASTER D (CON.) [Concomitant]
  5. MUCOSTA (CON.) [Concomitant]
  6. AMINO ACIDS/ CARBOHYDRATES/ MINERALS/ VITAMINS, (CON.) [Concomitant]
  7. PENTICILLIN (CON.) [Concomitant]

REACTIONS (8)
  - CONDITION AGGRAVATED [None]
  - DECREASED ACTIVITY [None]
  - DECREASED APPETITE [None]
  - EATING DISORDER [None]
  - FUNGAL TEST POSITIVE [None]
  - INTERSTITIAL LUNG DISEASE [None]
  - LYMPHOCYTE COUNT DECREASED [None]
  - RESPIRATORY FAILURE [None]
